FAERS Safety Report 4983650-3 (Version None)
Quarter: 2006Q1

REPORT INFORMATION
  Report Type: 
  Country: None (occurrence: None)
  Receive Date: 20060227
  Receipt Date: 20050512
  Transmission Date: 20060701
  Serious: Yes (Disabling)
  Sender: FDA-Public Use
  Company Number: WAES 0505USA01589

PATIENT
  Age: 79 Year
  Sex: Male

DRUGS (5)
  1. ZOCOR [Suspect]
     Indication: ARTERIAL DISORDER
     Dosage: 20 MG DAILY PO
     Route: 048
     Dates: start: 20020501
  2. AVAPRO [Concomitant]
  3. PLAVIX [Concomitant]
  4. THERAPY UNSPECIFIED [Concomitant]
  5. GABAPENTIN [Concomitant]

REACTIONS (1)
  - MYALGIA [None]
